FAERS Safety Report 4729291-4 (Version None)
Quarter: 2005Q3

REPORT INFORMATION
  Report Type: 
  Country: None (occurrence: None)
  Receive Date: 20050729
  Receipt Date: 20040920
  Transmission Date: 20060218
  Serious: No
  Sender: FDA-Public Use
  Company Number: US-GLAXOSMITHKLINE-A0526436A

PATIENT
  Age: 49 Year
  Sex: Female

DRUGS (7)
  1. IMITREX [Suspect]
     Indication: MIGRAINE
     Dosage: 50MG AS REQUIRED
     Route: 048
     Dates: start: 20000101
  2. CLONAZEPAM [Concomitant]
  3. FIORICET [Concomitant]
  4. DURAGESIC-100 [Concomitant]
  5. METHADONE [Concomitant]
  6. PAXIL [Concomitant]
  7. ELAVIL [Concomitant]

REACTIONS (1)
  - PARAESTHESIA [None]
